FAERS Safety Report 13238000 (Version 1)
Quarter: 2017Q1

REPORT INFORMATION
  Report Type: Spontaneous
  Country: US (occurrence: US)
  Receive Date: 20170215
  Receipt Date: 20170215
  Transmission Date: 20170428
  Serious: No
  Sender: FDA-Public Use
  Company Number: None

PATIENT
  Sex: Female
  Weight: 56.25 kg

DRUGS (1)
  1. NEXPLANON [Suspect]
     Active Substance: ETONOGESTREL
     Indication: CONTRACEPTION
     Dosage: ?          QUANTITY:1 ETONOGESTREL IMPLN;OTHER FREQUENCY:SELF DESPENSING;OTHER ROUTE:IMPLANT IN ARM?

REACTIONS (3)
  - Haemorrhage [None]
  - Loss of libido [None]
  - Asthenia [None]
